FAERS Safety Report 24669361 (Version 4)
Quarter: 2025Q1

REPORT INFORMATION
  Report Type: Report from Study
  Country: US (occurrence: US)
  Receive Date: 20241127
  Receipt Date: 20250108
  Transmission Date: 20250408
  Serious: Yes (Hospitalization)
  Sender: ROCHE
  Company Number: US-ROCHE-10000138531

PATIENT
  Age: 60 Year
  Sex: Female
  Weight: 49.9 kg

DRUGS (5)
  1. OCRELIZUMAB [Suspect]
     Active Substance: OCRELIZUMAB
     Indication: Multiple sclerosis
     Dosage: SUBSEQUENT DOSE : 15-JUL-2020, 600 MG FOR EVERY 6 MONTHS??LAST DOSE OF OCRELIZUMAB PRIOR TO ONSET OF
     Route: 065
     Dates: start: 20191231, end: 20200115
  2. METOPROLOL [Concomitant]
     Active Substance: METOPROLOL
     Dates: start: 20230308
  3. VITAMIN D [Concomitant]
     Active Substance: VITAMIN D NOS
  4. fluticasone prioponate [Concomitant]
     Dates: start: 20221214
  5. meclinzine [Concomitant]
     Route: 048

REACTIONS (4)
  - Infection [Recovered/Resolved]
  - Babesiosis [Recovered/Resolved]
  - Lyme disease [Recovered/Resolved]
  - Haemolytic anaemia [Recovered/Resolved]

NARRATIVE: CASE EVENT DATE: 20240811
